FAERS Safety Report 6245192-7 (Version None)
Quarter: 2009Q2

REPORT INFORMATION
  Report Type: 
  Country: None (occurrence: None)
  Receive Date: 20090625
  Receipt Date: 20090613
  Transmission Date: 20091009
  Serious: Yes (Other)
  Sender: FDA-Public Use
  Company Number: PHHY2009GB18292

PATIENT
  Sex: Male

DRUGS (1)
  1. CLOZARIL [Suspect]
     Indication: SCHIZOPHRENIA
     Dosage: UNK
     Dates: start: 20060404

REACTIONS (7)
  - FACE INJURY [None]
  - FALL [None]
  - JOINT SPRAIN [None]
  - MENTAL IMPAIRMENT [None]
  - SUTURE INSERTION [None]
  - THERAPY CESSATION [None]
  - WEIGHT INCREASED [None]
